FAERS Safety Report 20441023 (Version 1)
Quarter: 2022Q1

REPORT INFORMATION
  Report Type: Spontaneous
  Country: US (occurrence: US)
  Receive Date: 20220208
  Receipt Date: 20220208
  Transmission Date: 20220423
  Serious: Yes (Other)
  Sender: FDA-Public Use
  Company Number: US-BEH-2022141955

PATIENT
  Age: 32 Year
  Sex: Female

DRUGS (1)
  1. HUMATE-P [Suspect]
     Active Substance: HUMAN COAGULATION FACTOR VIII/VON WILLEBRAND FACTOR COMPLEX
     Indication: Von Willebrand^s disease
     Dosage: 2000 INTERNATIONAL UNIT, INFUSE 2000 RCOF UNITS (1800-2200) SLOW IV PUSH 1 HOUR PRIOR TO EACH DENTAL
     Route: 042
     Dates: start: 20150323

REACTIONS (1)
  - Abscess [Unknown]

NARRATIVE: CASE EVENT DATE: 20220122
